FAERS Safety Report 17396776 (Version 12)
Quarter: 2021Q2

REPORT INFORMATION
  Report Type: Spontaneous
  Country: US (occurrence: US)
  Receive Date: 20200210
  Receipt Date: 20210615
  Transmission Date: 20210716
  Serious: Yes (Hospitalization)
  Sender: FDA-Public Use
  Company Number: US-PFIZER INC-2020058000

PATIENT
  Age: 73 Year
  Sex: Male
  Weight: 71 kg

DRUGS (10)
  1. INLYTA [Suspect]
     Active Substance: AXITINIB
     Indication: RENAL CANCER
     Dosage: 5 MG, 2X/DAY (5MG 1 TABLET BY MOUTH IN THE MORNING AND ONCE IN THE EVENING)
     Route: 048
     Dates: start: 201912
  2. INLYTA [Suspect]
     Active Substance: AXITINIB
     Dosage: 5 MG, 1X/DAY (5MG IN THE EVENING)
     Dates: start: 20200311
  3. INLYTA [Suspect]
     Active Substance: AXITINIB
     Dosage: 1 MG
  4. VITAMINS NOS [Concomitant]
     Active Substance: VITAMINS
     Dosage: UNK
  5. INLYTA [Suspect]
     Active Substance: AXITINIB
     Dosage: 5 MG, 1X/DAY
  6. MODERNA COVID?19 VACCINE [Suspect]
     Active Substance: CX-024414
     Dosage: UNK (SECOND DOSE)
     Dates: start: 20210222
  7. INLYTA [Suspect]
     Active Substance: AXITINIB
     Indication: LUNG NEOPLASM MALIGNANT
     Dosage: 10 MG, DAILY (ONE IN THE MORNING AND ONE IN THE EVENING)
  8. MODERNA COVID?19 VACCINE [Suspect]
     Active Substance: CX-024414
     Indication: CORONAVIRUS INFECTION
     Dosage: UNK (FIRST DOSE)
  9. ASPIRIN. [Concomitant]
     Active Substance: ASPIRIN
     Dosage: UNK
  10. OMEGA 3 [Concomitant]
     Active Substance: OMEGA-3 FATTY ACIDS
     Dosage: UNK

REACTIONS (13)
  - Chills [Unknown]
  - Circumstance or information capable of leading to medication error [Unknown]
  - Dizziness [Unknown]
  - Rash [Recovered/Resolved]
  - Skin exfoliation [Recovering/Resolving]
  - Product dose omission issue [Unknown]
  - Sleep disorder [Unknown]
  - Renal disorder [Unknown]
  - Pyrexia [Unknown]
  - Dysphonia [Recovered/Resolved]
  - Thyroid disorder [Recovered/Resolved]
  - Headache [Unknown]
  - Temperature intolerance [Recovered/Resolved]

NARRATIVE: CASE EVENT DATE: 201912
